FAERS Safety Report 6294806 (Version 24)
Quarter: 2013Q4

REPORT INFORMATION
  Report Type: Spontaneous
  Country: US (occurrence: US)
  Receive Date: 20070424
  Receipt Date: 20131213
  Transmission Date: 20140711
  Serious: Yes (Death, Hospitalization, Other)
  Sender: FDA-Public Use
  Company Number: PHEH2007US05548

PATIENT
  Age: 74 Year
  Sex: Male
  Weight: 85.26 kg

DRUGS (78)
  1. AREDIA [Suspect]
     Route: 042
  2. ZOMETA [Suspect]
     Route: 042
     Dates: end: 20081008
  3. PRILOSEC [Concomitant]
     Dosage: 20 MG, UNK
  4. PREVACID [Concomitant]
     Dosage: 30 MG, UNK
  5. METOCLOPRAMIDE [Concomitant]
     Dosage: 10 MG, UNK
  6. NITROSTAT [Concomitant]
     Dosage: 0.4 MG, UNK
  7. MINITRAN [Concomitant]
     Dosage: 0.2 MG/H, UNK
  8. LEVAQUIN [Concomitant]
     Dosage: 500 MG, UNK
  9. PROFEN II DM [Concomitant]
  10. HYDROCODONE W/PARACETAMOL [Concomitant]
     Dosage: 7.5 MG, UNK
  11. FLOVENT [Concomitant]
     Dosage: 44 UG, UNK
  12. NEXIUM [Concomitant]
     Dosage: 40 MG, UNK
  13. ENDOCET [Concomitant]
     Dosage: 5 MG, UNK
  14. METOPROLOL [Concomitant]
     Dosage: 50 MG, UNK
  15. ALPRAZOLAM [Concomitant]
     Dosage: 0.25 MG, UNK
  16. NYSTATIN [Concomitant]
     Dosage: 10000 U, UNK
  17. MORPHINE SULFATE [Concomitant]
     Dosage: 20 MG/ML, UNK
  18. AMOXICILLIN [Concomitant]
     Dosage: 500 MG, UNK
  19. BIAXIN [Concomitant]
     Dosage: 250 MG, UNK
  20. ZITROMAX [Concomitant]
  21. OXYCODONE [Concomitant]
     Dosage: 5 MG, UNK
  22. DURAGESIC [Concomitant]
     Dosage: 25 UG/HR, UNK
  23. AMITRIPTYLINE [Concomitant]
     Dosage: 25 MG, UNK
  24. SYNTHROID [Concomitant]
     Dosage: 25 UG, UNK
  25. DEXAMETHASONE [Concomitant]
     Dosage: 4 MG, UNK
  26. EFEXOR XR [Concomitant]
     Dosage: 37.5 MG, UNK
  27. CIPRO ^MILES^ [Concomitant]
     Dosage: 250 UG, UNK
  28. CARISOPRODOL [Concomitant]
     Dosage: 350 MG, UNK
  29. PENICILLIN VK [Concomitant]
     Dosage: 500 MG, UNK
  30. PREDNISONE [Concomitant]
     Dosage: 20 MG, UNK
  31. PROCHLORPERAZINE [Concomitant]
     Dosage: 10 MG, UNK
  32. PAXIL [Concomitant]
     Dosage: 12.5 MG, UNK
  33. FAMVIR                                  /NET/ [Concomitant]
     Dosage: 500 MG, UNK
  34. VALTREX [Concomitant]
     Dosage: 500 MG, UNK
  35. PROVIGIL [Concomitant]
     Dosage: 200 MG, UNK
  36. CYMBALTA [Concomitant]
     Dosage: 60 MG, UNK
  37. LACTULOSE [Concomitant]
     Dosage: 10 G, UNK
  38. GLYBURIDE [Concomitant]
     Dosage: 1.25 MG, UNK
  39. FLUCONAZOLE [Concomitant]
     Dosage: 100 MG, UNK
  40. COMPRO [Concomitant]
     Dosage: 25 MG, UNK
  41. AVELOX [Concomitant]
     Dosage: 300 MG, UNK
  42. CHLORHEXIDINE [Concomitant]
     Dosage: 0.12 %, UNK
  43. SERTRALINE [Concomitant]
     Dosage: 50 MG, UNK
  44. VICODIN [Concomitant]
  45. PERCOCET [Concomitant]
  46. THALIDOMIDE [Concomitant]
  47. PHENERGAN ^AVENTIS PHARMA^ [Concomitant]
  48. NEURONTIN [Concomitant]
  49. OXYFAST [Concomitant]
  50. PROCRIT                            /00909301/ [Concomitant]
     Dates: start: 2004
  51. VELCADE [Concomitant]
  52. DEXAMETHASONE W/DOXORUBICIN/VINCRISTINE [Concomitant]
     Dates: start: 200210
  53. CLINDAMYCIN [Concomitant]
     Dosage: 300 MG, TID
  54. CALCIUM [Concomitant]
     Dosage: 600 MG, BID
  55. VITAMIN D [Concomitant]
     Dosage: 1000 MG, QD
  56. LEXAPRO [Concomitant]
  57. AUGMENTIN [Concomitant]
  58. CYTOXAN [Concomitant]
  59. ACYCLOVIR [Concomitant]
  60. KEFLEX                                  /UNK/ [Concomitant]
  61. VIDAZA [Concomitant]
  62. REVLIMID [Concomitant]
  63. DIFLUCAN [Concomitant]
  64. DECADRON                                /CAN/ [Concomitant]
  65. ALOXI [Concomitant]
  66. ZOLOFT (SERTRALINE HYDROCHLORIDE) [Concomitant]
     Dosage: 50 MG, QD
     Route: 048
  67. MAALOX                                  /NET/ [Concomitant]
  68. MYLANTA                                 /AUS/ [Concomitant]
  69. METHADONE [Concomitant]
     Dosage: 30 MG TID
  70. OXYLR [Concomitant]
     Dosage: 20 MG 1-2 TIMES PER DAY
  71. CLONAZEPAM [Concomitant]
  72. XANAX [Concomitant]
  73. GLUCOVANCE [Concomitant]
  74. OMEPRAZOLE [Concomitant]
  75. PAROXETINE [Concomitant]
  76. ATENOLOL [Concomitant]
     Dosage: 25 MG QD
  77. CHLORHEXAMED [Concomitant]
  78. MIRALAX [Concomitant]

REACTIONS (124)
  - Death [Fatal]
  - Plasma cell myeloma [Unknown]
  - Biopsy bone marrow [Unknown]
  - Osteonecrosis of jaw [Not Recovered/Not Resolved]
  - Injury [Unknown]
  - Pain in jaw [Unknown]
  - Gingival swelling [Unknown]
  - Anxiety [Unknown]
  - Lumbar spinal stenosis [Unknown]
  - Type 2 diabetes mellitus [Unknown]
  - Spinal disorder [Unknown]
  - Herpes zoster [Unknown]
  - Hypoaesthesia [Unknown]
  - Chest pain [Unknown]
  - Neck pain [Unknown]
  - Pain [Unknown]
  - Back pain [Unknown]
  - Bone pain [Unknown]
  - Headache [Unknown]
  - Drug dependence [Unknown]
  - Loss of consciousness [Unknown]
  - Blindness transient [Unknown]
  - Road traffic accident [Unknown]
  - Local swelling [Unknown]
  - Osteoarthritis [Unknown]
  - Anaemia [Unknown]
  - Mouth ulceration [Recovering/Resolving]
  - Gynaecomastia [Unknown]
  - Eye pain [Unknown]
  - Pyrexia [Unknown]
  - Cough [Unknown]
  - Pancytopenia [Unknown]
  - Fatigue [Unknown]
  - Malaise [Unknown]
  - Hyperglycaemia [Unknown]
  - Decreased appetite [Unknown]
  - Pneumonia [Unknown]
  - Pleural effusion [Unknown]
  - Aspiration pleural cavity [Unknown]
  - Mucosal inflammation [Unknown]
  - Hypokalaemia [Unknown]
  - Hypophosphataemia [Unknown]
  - Nausea [Unknown]
  - Vomiting [Unknown]
  - Sinusitis [Unknown]
  - Flank pain [Unknown]
  - Neck mass [Unknown]
  - Dysphagia [Unknown]
  - Glaucoma [Unknown]
  - Affective disorder [Unknown]
  - Vitamin B12 deficiency [Unknown]
  - Asbestosis [Unknown]
  - Sleep apnoea syndrome [Unknown]
  - Rotator cuff syndrome [Unknown]
  - Dehydration [Unknown]
  - Dyspnoea exertional [Unknown]
  - Leukopenia [Unknown]
  - Chills [Unknown]
  - Libido decreased [Unknown]
  - Myoclonus [Unknown]
  - Dysuria [Unknown]
  - Palpitations [Unknown]
  - Renal pain [Unknown]
  - Paraesthesia [Unknown]
  - Conjunctivitis [Unknown]
  - Papilloedema [Unknown]
  - Malignant neoplasm progression [Unknown]
  - Blood immunoglobulin A increased [Unknown]
  - Oral pain [Unknown]
  - Lip pain [Unknown]
  - Muscle spasms [Unknown]
  - Vision blurred [Unknown]
  - Dizziness [Unknown]
  - Gastrooesophageal reflux disease [Unknown]
  - Viral upper respiratory tract infection [Unknown]
  - Cardiomegaly [Unknown]
  - Weight decreased [Unknown]
  - Muscle twitching [Unknown]
  - Syncope [Unknown]
  - Spondylitic myelopathy [Unknown]
  - Demyelinating polyneuropathy [Unknown]
  - Aortic stenosis [Unknown]
  - Tricuspid valve incompetence [Unknown]
  - Bone fistula [Unknown]
  - Erythema [Unknown]
  - Swelling [Unknown]
  - Balance disorder [Unknown]
  - Asthenia [Unknown]
  - Breast pain [Unknown]
  - Breast swelling [Unknown]
  - Aphasia [Unknown]
  - Haemoptysis [Unknown]
  - Cachexia [Unknown]
  - Muscular weakness [Unknown]
  - Fall [Unknown]
  - Hyperhidrosis [Unknown]
  - Gingival bleeding [Unknown]
  - Generalised oedema [Unknown]
  - Pterygium [Unknown]
  - Cataract [Unknown]
  - Infection [Unknown]
  - Basal cell carcinoma [Unknown]
  - Convulsion [Unknown]
  - Hallucination [Unknown]
  - Delusion [Unknown]
  - Gait disturbance [Unknown]
  - Exposed bone in jaw [Unknown]
  - Lentigo [Unknown]
  - Bacterial disease carrier [Unknown]
  - Urinary tract infection [Unknown]
  - Bronchitis [Unknown]
  - Cardiac murmur [Unknown]
  - Left ventricular hypertrophy [Unknown]
  - Myositis [Unknown]
  - Tremor [Unknown]
  - Cerebral small vessel ischaemic disease [Unknown]
  - Dilatation ventricular [Unknown]
  - Mitral valve incompetence [Unknown]
  - Dermatitis [Unknown]
  - Rectal haemorrhage [Unknown]
  - Coronary artery disease [Unknown]
  - Intervertebral disc degeneration [Unknown]
  - Myocardial ischaemia [Unknown]
  - Influenza like illness [Unknown]
